FAERS Safety Report 7403038-5 (Version None)
Quarter: 2011Q2

REPORT INFORMATION
  Report Type: 
  Country: None (occurrence: None)
  Receive Date: 20110408
  Receipt Date: 20110222
  Transmission Date: 20111010
  Serious: No
  Sender: FDA-Public Use
  Company Number: US-NOVEN-11US001843

PATIENT
  Sex: Female

DRUGS (2)
  1. FENTANYL [Suspect]
     Dosage: 100 UG, UNKNOWN
     Route: 062
  2. FENTANYL [Suspect]
     Indication: PAIN
     Dosage: 50 UG, Q72HRS
     Route: 062

REACTIONS (3)
  - INADEQUATE ANALGESIA [None]
  - PRODUCT QUALITY ISSUE [None]
  - DRUG ADMINISTRATION ERROR [None]
